FAERS Safety Report 9668937 (Version 2)
Quarter: 2015Q2

REPORT INFORMATION
  Report Type: Spontaneous
  Country: US (occurrence: US)
  Receive Date: 20131105
  Receipt Date: 20150607
  Transmission Date: 20150821
  Serious: Yes (Hospitalization, Congenital Anomaly, Other)
  Sender: FDA-Public Use
  Company Number: US-ELI_LILLY_AND_COMPANY-US201310008473

PATIENT

DRUGS (3)
  1. PROZAC [Suspect]
     Active Substance: FLUOXETINE HYDROCHLORIDE
     Indication: PRODUCT USED FOR UNKNOWN INDICATION
     Dosage: 1 DF, UNKNOWN
     Route: 064
  2. PRENATAL VITAMINS                  /08195401/ [Concomitant]
     Route: 064
  3. CECLOR [Concomitant]
     Active Substance: CEFACLOR
     Indication: EAR INFECTION
     Route: 064

REACTIONS (5)
  - Foetal exposure during pregnancy [Recovered/Resolved]
  - Epilepsy [Unknown]
  - Breech presentation [Recovered/Resolved]
  - Premature baby [Recovered/Resolved]
  - Gastroschisis [Unknown]
